FAERS Safety Report 5356092-9 (Version None)
Quarter: 2007Q2

REPORT INFORMATION
  Report Type: 
  Country: None (occurrence: None)
  Receive Date: 20070613
  Receipt Date: 20070530
  Transmission Date: 20071010
  Serious: Yes (Hospitalization)
  Sender: FDA-Public Use
  Company Number: US-ELI_LILLY_AND_COMPANY-US200705007413

PATIENT
  Age: 50 Year
  Sex: Female

DRUGS (4)
  1. PROZAC [Suspect]
     Indication: DEPRESSION
     Dosage: 40 MG, DAILY (1/D)
     Route: 048
     Dates: start: 20000101
  2. ENABLEX /01760402/ [Concomitant]
  3. LOTREL [Concomitant]
  4. ANALGESIC                          /00735901/ [Concomitant]

REACTIONS (3)
  - GASTRIC BYPASS [None]
  - RETCHING [None]
  - WEIGHT DECREASED [None]
